FAERS Safety Report 16193334 (Version 2)
Quarter: 2019Q2

REPORT INFORMATION
  Report Type: Spontaneous
  Country: IT (occurrence: IT)
  Receive Date: 20190413
  Receipt Date: 20190430
  Transmission Date: 20190711
  Serious: Yes (Hospitalization, Other)
  Sender: FDA-Public Use
  Company Number: IT-ACCORD-120735

PATIENT
  Age: 56 Year
  Sex: Female

DRUGS (2)
  1. ANASTROZOLE. [Suspect]
     Active Substance: ANASTROZOLE
     Indication: BREAST CANCER
  2. TICLOPIDINE [Concomitant]
     Active Substance: TICLOPIDINE
     Indication: THROMBOPHLEBITIS

REACTIONS (2)
  - Aphasia [Unknown]
  - Antiphospholipid syndrome [Recovering/Resolving]
